FAERS Safety Report 10187173 (Version 1)
Quarter: 2014Q2

REPORT INFORMATION
  Report Type: Spontaneous
  Country: US (occurrence: None)
  Receive Date: 20140520
  Receipt Date: 20140520
  Transmission Date: 20141212
  Serious: Yes (Death)
  Sender: FDA-Public Use
  Company Number: INS201405-000074

PATIENT
  Age: 65 Year
  Sex: Male

DRUGS (1)
  1. SUBSYS [Suspect]
     Route: 060

REACTIONS (1)
  - Death [None]
